FAERS Safety Report 9628011 (Version 2)
Quarter: 2013Q4

REPORT INFORMATION
  Report Type: Spontaneous
  Country: US (occurrence: US)
  Receive Date: 20131016
  Receipt Date: 20131105
  Transmission Date: 20140711
  Serious: No
  Sender: FDA-Public Use
  Company Number: US-009507513-1310USA001415

PATIENT
  Age: 69 Year
  Sex: Female

DRUGS (12)
  1. DULERA [Suspect]
     Indication: COUGH
     Dosage: 2 SPRAYS TWICE A DAY
     Route: 055
     Dates: start: 20130916, end: 20130924
  2. DULERA [Suspect]
     Indication: ASTHMA
  3. PREDNISONE [Suspect]
     Dosage: 20 MG,
     Route: 048
  4. PREDNISONE [Suspect]
     Dosage: 10 MG,
     Route: 048
  5. ASMANEX TWISTHALER [Concomitant]
  6. LEVOCETIRIZINE [Concomitant]
  7. MONTELUKAST SODIUM [Concomitant]
  8. CALTRATE (CALCIUM CARBONATE) [Concomitant]
  9. FIORICET [Concomitant]
  10. PROVENTIL [Concomitant]
  11. TOPIRAMATE [Concomitant]
  12. ZEGERID [Concomitant]

REACTIONS (4)
  - Aptyalism [Not Recovered/Not Resolved]
  - Choking [Not Recovered/Not Resolved]
  - Dysphagia [Not Recovered/Not Resolved]
  - Weight decreased [Not Recovered/Not Resolved]
